FAERS Safety Report 10563819 (Version 1)
Quarter: 2014Q4

REPORT INFORMATION
  Report Type: Report from Study
  Country: BR (occurrence: BR)
  Receive Date: 20141104
  Receipt Date: 20141104
  Transmission Date: 20150529
  Serious: Yes (Other)
  Sender: FDA-Public Use
  Company Number: PHHY2014BR143537

PATIENT
  Sex: Female
  Weight: 68 kg

DRUGS (10)
  1. DIOVAN [Suspect]
     Active Substance: VALSARTAN
     Indication: HYPERTENSION
     Dosage: 1 DF, QD (IN THE MORNING)
     Route: 065
  2. OLCADIL [Suspect]
     Active Substance: CLOXAZOLAM
     Indication: SEDATIVE THERAPY
     Dosage: 0.5 DF (1 MG) BID (IN THE MORNING AND AT NIGHT) UNTIL ACHIVE 2 MG QD IF NECESSARY
     Route: 048
  3. OLCADIL [Suspect]
     Active Substance: CLOXAZOLAM
     Indication: HYPERTENSION
     Dosage: 2 MG, BID (IN THE MORNING WITH DIOVAN AND AT NIGHT WITH TEGRETOL)
     Route: 048
  4. HIGROTON [Suspect]
     Active Substance: CHLORTHALIDONE
     Indication: DIURETIC THERAPY
     Dosage: 1 DF (25 MG), QD (IN THE MORNING)
     Route: 048
  5. TEGRETOL [Suspect]
     Active Substance: CARBAMAZEPINE
     Indication: OFF LABEL USE
  6. DIOVAN AMLO FIX [Suspect]
     Active Substance: AMLODIPINE\VALSARTAN
     Indication: PRODUCT USED FOR UNKNOWN INDICATION
     Dosage: 320/5 MG, UNK
     Route: 065
  7. TEGRETOL [Suspect]
     Active Substance: CARBAMAZEPINE
     Indication: MEMORY IMPAIRMENT
     Dosage: 200 MG, TID
     Route: 048
  8. CARBAMAZEPINE. [Suspect]
     Active Substance: CARBAMAZEPINE
     Indication: PRODUCT USED FOR UNKNOWN INDICATION
     Dosage: UNK DF, UNK
     Route: 065
  9. OLCADIL [Suspect]
     Active Substance: CLOXAZOLAM
     Indication: EMOTIONAL DISORDER
     Dosage: 0.5 DF (1 MG), QD (IN THE MORNING)
     Route: 048
  10. OLCADIL [Suspect]
     Active Substance: CLOXAZOLAM
     Indication: OFF LABEL USE

REACTIONS (8)
  - Weight decreased [Unknown]
  - Gallbladder disorder [Unknown]
  - Pain in extremity [Unknown]
  - Mental disorder [Unknown]
  - Agitation [Unknown]
  - Blood pressure inadequately controlled [Recovering/Resolving]
  - Blood pressure increased [Recovering/Resolving]
  - Venous occlusion [Unknown]
